FAERS Safety Report 13086360 (Version 1)
Quarter: 2017Q1

REPORT INFORMATION
  Report Type: Spontaneous
  Country: US (occurrence: US)
  Receive Date: 20170104
  Receipt Date: 20170104
  Transmission Date: 20170428
  Serious: No
  Sender: FDA-Public Use
  Company Number: US-MISSION PHARMACAL COMPANY-1061538

PATIENT
  Age: 45 Year
  Sex: Male

DRUGS (2)
  1. THIOLA [Suspect]
     Active Substance: TIOPRONIN
     Indication: CYSTINURIA
     Route: 065
     Dates: start: 20161111
  2. COUGH MEDICINE (NOT SPECIFIED) [Concomitant]

REACTIONS (3)
  - Cough [Unknown]
  - Pruritus [Unknown]
  - Rash generalised [Recovered/Resolved with Sequelae]
